FAERS Safety Report 9254794 (Version 2)
Quarter: 2013Q2

REPORT INFORMATION
  Report Type: Spontaneous
  Country: US (occurrence: US)
  Receive Date: 20130425
  Receipt Date: 20130524
  Transmission Date: 20140414
  Serious: Yes (Hospitalization)
  Sender: FDA-Public Use
  Company Number: US-SANOFI-AVENTIS-2013SA041744

PATIENT
  Age: 43 Year
  Sex: Female

DRUGS (1)
  1. AUBAGIO [Suspect]
     Route: 048

REACTIONS (3)
  - Multiple sclerosis relapse [Unknown]
  - Pharyngitis streptococcal [Unknown]
  - Diarrhoea [Unknown]
